FAERS Safety Report 19335834 (Version 1)
Quarter: 2021Q2

REPORT INFORMATION
  Report Type: Spontaneous
  Country: US (occurrence: US)
  Receive Date: 20210530
  Receipt Date: 20210530
  Transmission Date: 20210717
  Serious: Yes (Other)
  Sender: FDA-Public Use
  Company Number: US-PURDUE-USA-2020-0207429

PATIENT
  Sex: Male

DRUGS (1)
  1. OXYCONTIN [Suspect]
     Active Substance: OXYCODONE HYDROCHLORIDE
     Indication: PRODUCT USED FOR UNKNOWN INDICATION
     Dosage: UNK
     Route: 048

REACTIONS (8)
  - Dizziness [Unknown]
  - Disturbance in attention [Unknown]
  - Drug dependence [Unknown]
  - Aggression [Unknown]
  - Confusional state [Unknown]
  - Nightmare [Unknown]
  - Chills [Unknown]
  - Impaired driving ability [Unknown]
